FAERS Safety Report 13006680 (Version 2)
Quarter: 2017Q1

REPORT INFORMATION
  Report Type: Report from Study
  Country: None (occurrence: NL)
  Receive Date: 20161207
  Receipt Date: 20170114
  Transmission Date: 20170428
  Serious: Yes (Other)
  Sender: FDA-Public Use
  Company Number: NL-ABBVIE-16K-114-1796796-00

PATIENT
  Sex: Female
  Weight: 61 kg

DRUGS (5)
  1. LEVODOPA/CARBIDOPA [Concomitant]
     Active Substance: CARBIDOPA\LEVODOPA
     Indication: PRODUCT USED FOR UNKNOWN INDICATION
     Dosage: 125, FOR THE NIGHT
  2. DUODOPA [Suspect]
     Active Substance: CARBIDOPA\LEVODOPA
     Dosage: CONTINUOUS DOSE IS REDUCED WITH 0.3ML
     Route: 050
     Dates: start: 2016
  3. DUODOPA [Suspect]
     Active Substance: CARBIDOPA\LEVODOPA
     Indication: PARKINSON^S DISEASE
     Dosage: MD: 8.5, CD: 3.7, ED: 2.0
     Route: 050
     Dates: start: 20160921, end: 2016
  4. GLUCOSE [Concomitant]
     Active Substance: DEXTROSE
     Indication: DIABETES MELLITUS
  5. TEMAZEPAM. [Concomitant]
     Active Substance: TEMAZEPAM
     Indication: PRODUCT USED FOR UNKNOWN INDICATION

REACTIONS (16)
  - Uterine prolapse [Not Recovered/Not Resolved]
  - On and off phenomenon [Not Recovered/Not Resolved]
  - Sleep disorder [Not Recovered/Not Resolved]
  - Lethargy [Not Recovered/Not Resolved]
  - Malaise [Unknown]
  - Hyperkinesia [Not Recovered/Not Resolved]
  - Gait disturbance [Not Recovered/Not Resolved]
  - Stoma site inflammation [Recovered/Resolved]
  - Dyskinesia [Not Recovered/Not Resolved]
  - Drug effect decreased [Unknown]
  - Fibroma [Recovered/Resolved]
  - Gastrointestinal stoma necrosis [Recovered/Resolved]
  - Pollakiuria [Not Recovered/Not Resolved]
  - Stoma site discomfort [Recovered/Resolved]
  - Device dislocation [Not Recovered/Not Resolved]
  - Stoma site reaction [Recovered/Resolved]

NARRATIVE: CASE EVENT DATE: 2016
